FAERS Safety Report 8778434 (Version 1)
Quarter: 2012Q4

REPORT INFORMATION
  Report Type: 
  Country: FR (occurrence: FR)
  Receive Date: 20120912
  Receipt Date: 20120912
  Transmission Date: 20130627
  Serious: Yes (Death, Other)
  Sender: FDA-Public Use
  Company Number: FR-ARROW-2012-15632

PATIENT
  Age: 37 Year
  Sex: Male
  Weight: 62 kg

DRUGS (2)
  1. ROPINIROLE HYDROCHLORIDE [Suspect]
     Indication: PRODUCT USED FOR UNKNOWN INDICATION
     Dosage: UNK
     Route: 065
  2. ALCOHOL [Suspect]
     Indication: PRODUCT USED FOR UNKNOWN INDICATION
     Dosage: UNK
     Route: 065

REACTIONS (3)
  - Poisoning [Fatal]
  - Pulmonary oedema [Not Recovered/Not Resolved]
  - Intentional drug misuse [Fatal]
